FAERS Safety Report 7247062 (Version 7)
Quarter: 2013Q3

REPORT INFORMATION
  Report Type: Spontaneous
  Country: US (occurrence: US)
  Receive Date: 20100115
  Receipt Date: 20130903
  Transmission Date: 20140515
  Serious: Yes (Hospitalization, Other)
  Sender: FDA-Public Use
  Company Number: PHEH2010US00473

PATIENT
  Sex: Female

DRUGS (42)
  1. ZOMETA [Suspect]
     Indication: METASTASES TO BONE
     Dosage: 4 MG
     Route: 042
  2. DOXYCYCLINE [Concomitant]
     Dosage: 100 MG, UNK
  3. HEPARIN [Concomitant]
  4. PERCOCET [Concomitant]
  5. DULCOLAX [Concomitant]
  6. VALIUM [Concomitant]
     Dosage: 5 MG, UNK
     Route: 048
  7. NALOXONE [Concomitant]
  8. MORPHINE SULFATE [Concomitant]
  9. TORADOL [Concomitant]
     Dosage: 30 MG, UNK
  10. BISACODYL [Concomitant]
     Dosage: 10 MG, UNK
  11. SOMA [Concomitant]
     Dosage: 350 MG, UNK
     Route: 048
  12. TAMOXIFEN [Concomitant]
  13. ZOLADEX [Concomitant]
  14. AUGMENTIN [Concomitant]
     Dosage: 500 MG, UNK
  15. CEFOXITIN [Concomitant]
     Dosage: 2 MG, UNK
  16. TYLENOL [Concomitant]
     Dosage: 650 MG, UNK
     Route: 048
  17. AMBIEN [Concomitant]
     Dosage: 10 MG, UNK
  18. FLAGYL [Concomitant]
     Dosage: 500 MG, UNK
  19. CEFTIZOXIME SODIUM [Concomitant]
  20. MOTRIN [Concomitant]
     Dosage: 600 MG, UNK
  21. COLACE [Concomitant]
     Dosage: 1 DF, QD
     Route: 048
  22. METRONIDAZOLE [Concomitant]
     Dosage: 500 MG, UNK
  23. TEMAZEPAM [Concomitant]
  24. OXYCONTIN [Concomitant]
     Dosage: 20 MG, UNK
     Route: 048
  25. ATIVAN [Concomitant]
     Dosage: 2 MG, UNK
  26. DEMEROL [Concomitant]
     Dosage: 50 MG, UNK
  27. PHENERGAN [Concomitant]
     Dosage: 12.5 MG, UNK
  28. ANZEMET [Concomitant]
     Dosage: 100 MG, UNK
  29. DEXAMETHASONE [Concomitant]
     Dosage: 120 MG, UNK
  30. XELODA [Concomitant]
     Dosage: 1000 MG, BID
     Route: 048
  31. ZOFRAN [Concomitant]
     Dosage: 4 MG, UNK
  32. COMPAZINE [Concomitant]
     Dosage: 5 MG, UNK
     Route: 048
  33. LIDOCAINE [Concomitant]
  34. CARISOPRODOL [Concomitant]
     Dosage: 350 MG, UNK
  35. PREVACID [Concomitant]
     Dosage: 30 MG,.QD
  36. DARVOCET-N [Concomitant]
  37. KLONOPIN [Concomitant]
     Dosage: 5 MG,BID
  38. SONATA [Concomitant]
  39. REMERON [Concomitant]
  40. NEXIUM [Concomitant]
  41. XANAX [Concomitant]
  42. LAMISIL [Concomitant]

REACTIONS (49)
  - Osteonecrosis of jaw [Unknown]
  - Pain [Unknown]
  - Anxiety [Unknown]
  - Decreased interest [Unknown]
  - General physical health deterioration [Unknown]
  - Endometrial hyperplasia [Unknown]
  - Postmenopausal haemorrhage [Unknown]
  - Breast cancer [Unknown]
  - Uterine fibrosis [Unknown]
  - Osteolysis [Unknown]
  - Pelvic abscess [Unknown]
  - Hepatitis C [Unknown]
  - Intervertebral disc protrusion [Unknown]
  - Back pain [Unknown]
  - Fall [Unknown]
  - Ligament sprain [Unknown]
  - Hand fracture [Unknown]
  - Metastases to bone [Unknown]
  - Bone lesion [Unknown]
  - Pain in extremity [Unknown]
  - Lobar pneumonia [Unknown]
  - Hyponatraemia [Unknown]
  - Chest pain [Unknown]
  - Sepsis [Unknown]
  - Hypotension [Unknown]
  - Dehydration [Unknown]
  - Lung infiltration [Unknown]
  - Pleural effusion [Unknown]
  - Pericardial cyst [Unknown]
  - Thrombocytopenia [Unknown]
  - Intervertebral disc degeneration [Unknown]
  - Rib fracture [Recovering/Resolving]
  - Metastases to liver [Unknown]
  - Rectal cancer [Unknown]
  - Second primary malignancy [Unknown]
  - Sinusitis [Unknown]
  - Rash [Unknown]
  - Eczema [Unknown]
  - Ovarian cyst [Unknown]
  - Emphysema [Unknown]
  - Haematuria [Unknown]
  - Depression [Unknown]
  - Dyspnoea [Unknown]
  - Ear pain [Unknown]
  - Gastrooesophageal reflux disease [Unknown]
  - Onychomycosis [Unknown]
  - Onychogryphosis [Unknown]
  - Vaginal haemorrhage [Unknown]
  - Lordosis [Unknown]
